FAERS Safety Report 8616946-4 (Version None)
Quarter: 2012Q3

REPORT INFORMATION
  Report Type: 
  Country: None (occurrence: None)
  Receive Date: 20120823
  Receipt Date: 20120811
  Transmission Date: 20120928
  Serious: Yes (Other)
  Sender: FDA-Public Use
  Company Number: US-009507513-1205USA04891

PATIENT

DRUGS (6)
  1. EMEND [Suspect]
     Dosage: 150 MG, ONCE
     Route: 041
     Dates: start: 20120503
  2. TAXOL [Concomitant]
     Dosage: 135 MG/M2, UNK
     Dates: start: 20120503
  3. TAXOL [Concomitant]
     Dosage: 135 MG/M2, UNK
     Dates: start: 20120524
  4. CISPLATIN [Concomitant]
     Dosage: 50 MG/M2, UNK
     Dates: start: 20120503
  5. EMEND [Suspect]
     Indication: PROPHYLAXIS OF NAUSEA AND VOMITING
     Dosage: 150 MG, ONCE
     Route: 041
     Dates: start: 20120524
  6. CISPLATIN [Concomitant]
     Dosage: 50 MG/M2, UNK
     Dates: start: 20120524

REACTIONS (2)
  - CHEST PAIN [None]
  - DYSPNOEA [None]
